FAERS Safety Report 19513441 (Version 2)
Quarter: 2021Q3

REPORT INFORMATION
  Report Type: Spontaneous
  Country: DE (occurrence: DE)
  Receive Date: 20210709
  Receipt Date: 20210920
  Transmission Date: 20211014
  Serious: Yes (Hospitalization)
  Sender: FDA-Public Use
  Company Number: DE-MYLANLABS-2021M1039301

PATIENT
  Age: 67 Year
  Sex: Female

DRUGS (5)
  1. FLUOROURACIL. [Suspect]
     Active Substance: FLUOROURACIL
     Indication: PRODUCT USED FOR UNKNOWN INDICATION
     Dosage: 1521 MILLIGRAM(1512 MG/96 H, ZULETZT AM 20102020)
  2. CISPLATIN. [Suspect]
     Active Substance: CISPLATIN
     Indication: PRODUCT USED FOR UNKNOWN INDICATION
     Dosage: 30 MG, 23102020
  3. KREON [Concomitant]
     Active Substance: PANCRELIPASE
     Dosage: 25000 INTERNATIONAL UNIT(25000 IE, 1?1?1?0)
  4. METOCLOPRAMID                      /00041901/ [Concomitant]
     Active Substance: METOCLOPRAMIDE
     Dosage: 10 MILLIGRAM(10 MG, 1?1?1?0)
  5. DEXAMETHASON                       /00016001/ [Concomitant]
     Active Substance: DEXAMETHASONE
     Dosage: 4 MILLIGRAM(4 MG, 1?0?0?0)

REACTIONS (7)
  - Weight decreased [Unknown]
  - Decreased appetite [Unknown]
  - Condition aggravated [Unknown]
  - Paraesthesia [Unknown]
  - Nausea [Unknown]
  - General physical health deterioration [Unknown]
  - Fatigue [Unknown]
